FAERS Safety Report 10043944 (Version 2)
Quarter: 2014Q1

REPORT INFORMATION
  Report Type: Spontaneous
  Country: US (occurrence: US)
  Receive Date: 20140328
  Receipt Date: 20140328
  Transmission Date: 20141002
  Serious: No
  Sender: FDA-Public Use
  Company Number: US-MYLANLABS-2013S1009241

PATIENT
  Age: 39 Year
  Sex: Female
  Weight: 68.04 kg

DRUGS (6)
  1. EMSAM (SELEGILINE TRANSDERMAL SYSTEM) [Suspect]
     Indication: DEPRESSION
     Dosage: QD
     Route: 062
     Dates: start: 201304
  2. XYREM [Concomitant]
  3. SEROQUEL [Concomitant]
  4. LYRICA [Concomitant]
  5. DOXYCYCLINE [Concomitant]
  6. XANAX [Concomitant]

REACTIONS (2)
  - Insomnia [Not Recovered/Not Resolved]
  - Dizziness [Not Recovered/Not Resolved]
